FAERS Safety Report 5773712-5 (Version None)
Quarter: 2008Q2

REPORT INFORMATION
  Report Type: 
  Country: None (occurrence: None)
  Receive Date: 20080616
  Receipt Date: 20080610
  Transmission Date: 20081010
  Serious: Yes (Death, Other)
  Sender: FDA-Public Use
  Company Number: JP-BRISTOL-MYERS SQUIBB COMPANY-14210777

PATIENT
  Age: 38 Year
  Sex: Female
  Weight: 64 kg

DRUGS (5)
  1. ABILIFY [Suspect]
     Indication: SCHIZOAFFECTIVE DISORDER
     Dosage: 20FEB-03MAR08:12MG,04MAR-11MAR08:18MG,12MAR-18MAR08:24MG,19MAR-22APR08:30MG,22APR-17MAY08:24MG
     Route: 048
     Dates: start: 20080220, end: 20080517
  2. LITHIUM CARBONATE [Concomitant]
     Dosage: DOSE FORM=TABLET
     Dates: end: 20080517
  3. SEROQUEL [Concomitant]
     Dates: start: 20060922, end: 20080517
  4. EURODIN [Concomitant]
     Dates: start: 20070510, end: 20080517
  5. LORAZEPAM [Concomitant]
     Dates: start: 20060922, end: 20080517

REACTIONS (3)
  - COMPLETED SUICIDE [None]
  - DELUSION [None]
  - HALLUCINATION [None]
